APPROVED DRUG PRODUCT: EPTIFIBATIDE
Active Ingredient: EPTIFIBATIDE
Strength: 2MG/ML
Dosage Form/Route: INJECTABLE;INJECTION
Application: A213081 | Product #001 | TE Code: AP
Applicant: HAINAN SHUANGCHENG PHARMACEUTICALS CO LTD
Approved: Sep 7, 2021 | RLD: No | RS: No | Type: RX